FAERS Safety Report 12551835 (Version 1)
Quarter: 2016Q3

REPORT INFORMATION
  Report Type: Other
  Country: GB (occurrence: GB)
  Receive Date: 20160713
  Receipt Date: 20160713
  Transmission Date: 20161109
  Serious: Yes (Other)
  Sender: FDA-Public Use
  Company Number: GB-LUPIN PHARMACEUTICALS INC.-2016-03090

PATIENT
  Age: 33 Year
  Sex: Male

DRUGS (7)
  1. CLOZAPINE. [Interacting]
     Active Substance: CLOZAPINE
     Dosage: 600 MG
     Route: 065
  2. CLOZAPINE. [Interacting]
     Active Substance: CLOZAPINE
     Dosage: 400 MG
     Route: 065
  3. CLOZAPINE. [Interacting]
     Active Substance: CLOZAPINE
     Indication: SCHIZOPHRENIA
     Route: 065
  4. RIFAMPICIN [Suspect]
     Active Substance: RIFAMPIN
     Indication: TUBERCULOSIS
     Route: 065
  5. ISONIAZID. [Concomitant]
     Active Substance: ISONIAZID
     Indication: TUBERCULOSIS
     Route: 065
  6. CLOZAPINE. [Interacting]
     Active Substance: CLOZAPINE
     Dosage: 400 MG
     Route: 065
  7. PYRAZINAMIDE. [Concomitant]
     Active Substance: PYRAZINAMIDE
     Indication: TUBERCULOSIS
     Route: 065

REACTIONS (2)
  - Schizophrenia [Recovered/Resolved]
  - Drug interaction [Unknown]
